FAERS Safety Report 4725180-X (Version None)
Quarter: 2005Q3

REPORT INFORMATION
  Report Type: 
  Country: None (occurrence: None)
  Receive Date: 20050725
  Receipt Date: 20050715
  Transmission Date: 20060218
  Serious: Yes (Hospitalization, Other)
  Sender: FDA-Public Use
  Company Number: KII-2005-0017537

PATIENT
  Age: 1 Year
  Sex: Female

DRUGS (1)
  1. MORPHINE SULFATE [Suspect]
     Dosage: SEE TEXT, ORAL
     Route: 048
     Dates: start: 20050619

REACTIONS (3)
  - ACCIDENTAL DRUG INTAKE BY CHILD [None]
  - RESPIRATORY RATE DECREASED [None]
  - SOMNOLENCE [None]
